FAERS Safety Report 17372726 (Version 2)
Quarter: 2020Q3

REPORT INFORMATION
  Report Type: Spontaneous
  Country: JP (occurrence: JP)
  Receive Date: 20200205
  Receipt Date: 20200721
  Transmission Date: 20201102
  Serious: Yes (Death, Other)
  Sender: FDA-Public Use
  Company Number: JP-009507513-2002JPN000124J

PATIENT
  Age: 62 Year
  Sex: Female

DRUGS (1)
  1. ZERBAXA [Suspect]
     Active Substance: CEFTOLOZANE SULFATE\TAZOBACTAM SODIUM
     Indication: SEPSIS
     Dosage: 3 GRAM, TID
     Route: 041
     Dates: start: 20190109, end: 201901

REACTIONS (3)
  - Gastric cancer [Fatal]
  - Cerebral haemorrhage [Fatal]
  - Cerebral infarction [Fatal]

NARRATIVE: CASE EVENT DATE: 201901
